FAERS Safety Report 8432572-4 (Version None)
Quarter: 2012Q2

REPORT INFORMATION
  Report Type: 
  Country: None (occurrence: None)
  Receive Date: 20120613
  Receipt Date: 20120531
  Transmission Date: 20120825
  Serious: Yes (Disabling)
  Sender: FDA-Public Use
  Company Number: US-AMGEN-USASP2012035329

PATIENT
  Age: 52 Year
  Sex: Female
  Weight: 81.63 kg

DRUGS (16)
  1. TRAMADOL HCL [Concomitant]
     Dosage: UNK
  2. ENBREL [Suspect]
     Indication: PSORIATIC ARTHROPATHY
     Dosage: 50 MG, WEEKLY
     Route: 058
     Dates: start: 20120401
  3. ENBREL [Suspect]
     Indication: PSORIASIS
  4. CYMBALTA [Concomitant]
     Dosage: UNK
  5. VOLTAREN [Concomitant]
     Dosage: UNK
  6. OMEPRAZOLE [Concomitant]
     Dosage: UNK
  7. BETAMETHASONE DIPROPIONATE [Concomitant]
     Indication: PSORIASIS
     Dosage: UNK
  8. POTASSIUM [Concomitant]
     Dosage: UNK
  9. VERAPAMIL [Concomitant]
     Dosage: UNK
  10. TYLENOL (CAPLET) [Concomitant]
     Dosage: UNK
  11. CLOTRIMAZOLE [Concomitant]
     Dosage: UNK
  12. VITAMIN D [Concomitant]
     Dosage: UNK
  13. LOSARTAN POTASSIUM AND HYDROCHLOROTHIAZIDE [Concomitant]
     Dosage: UNK
  14. SYNTHROID [Concomitant]
     Dosage: UNK
  15. FOLIC ACID [Concomitant]
     Dosage: UNK
  16. ALBUTEROL [Concomitant]
     Dosage: UNK

REACTIONS (6)
  - ACTIVITIES OF DAILY LIVING IMPAIRED [None]
  - ASTHENIA [None]
  - FATIGUE [None]
  - PRURITUS GENERALISED [None]
  - MALAISE [None]
  - INJECTION SITE REACTION [None]
